FAERS Safety Report 16531540 (Version 1)
Quarter: 2019Q3

REPORT INFORMATION
  Report Type: Spontaneous
  Country: GB (occurrence: GB)
  Receive Date: 20190704
  Receipt Date: 20190704
  Transmission Date: 20191004
  Serious: Yes (Other)
  Sender: FDA-Public Use
  Company Number: GB-ACCORD-136994

PATIENT
  Age: 43 Year
  Sex: Male
  Weight: 134 kg

DRUGS (14)
  1. ATORVASTATIN [Concomitant]
     Active Substance: ATORVASTATIN
     Dates: start: 20180803
  2. FLUOXETINE [Concomitant]
     Active Substance: FLUOXETINE HYDROCHLORIDE
     Dates: start: 20190524
  3. LANSOPRAZOLE. [Concomitant]
     Active Substance: LANSOPRAZOLE
     Dates: start: 20180803
  4. METOCLOPRAMIDE. [Concomitant]
     Active Substance: METOCLOPRAMIDE
     Dates: start: 20180803
  5. CODEINE [Concomitant]
     Active Substance: CODEINE
     Dates: start: 20180803
  6. VENTOLIN [Concomitant]
     Active Substance: ALBUTEROL SULFATE
     Dosage: 3-4 TIMES/DAY
     Route: 055
     Dates: start: 20180803
  7. FOSTAIR [Concomitant]
     Active Substance: BECLOMETHASONE\FORMOTEROL
     Dosage: PUFFS
     Route: 055
     Dates: start: 20180803
  8. APIXABAN [Concomitant]
     Active Substance: APIXABAN
     Dates: start: 20180803
  9. SALBUTAMOL [Concomitant]
     Active Substance: ALBUTEROL
     Route: 055
     Dates: start: 20180904
  10. PREGABALIN. [Concomitant]
     Active Substance: PREGABALIN
     Dates: start: 20180803
  11. LAMOTRIGINE. [Concomitant]
     Active Substance: LAMOTRIGINE
     Dates: start: 20180803
  12. SERTRALINE [Suspect]
     Active Substance: SERTRALINE HYDROCHLORIDE
     Indication: PRODUCT USED FOR UNKNOWN INDICATION
     Dates: start: 20190607
  13. MOVICOL [Concomitant]
     Active Substance: POLYETHYLENE GLYCOL 3350\POTASSIUM CHLORIDE\SODIUM BICARBONATE\SODIUM CHLORIDE
     Dosage: 2-3 SACHETS DAILY
     Dates: start: 20180803
  14. TAMSULOSIN [Concomitant]
     Active Substance: TAMSULOSIN
     Dates: start: 20180904

REACTIONS (1)
  - Abnormal weight gain [Recovering/Resolving]

NARRATIVE: CASE EVENT DATE: 20190607
